FAERS Safety Report 8386810-7 (Version None)
Quarter: 2012Q2

REPORT INFORMATION
  Report Type: 
  Country: None (occurrence: None)
  Receive Date: 20120525
  Receipt Date: 20120516
  Transmission Date: 20120825
  Serious: Yes (Hospitalization, Other)
  Sender: FDA-Public Use
  Company Number: US-BRISTOL-MYERS SQUIBB COMPANY-16598625

PATIENT
  Age: 56 Year
  Sex: Male

DRUGS (8)
  1. TRUVADA [Concomitant]
  2. NORVIR [Concomitant]
     Dosage: LIQUID
  3. ZYPREXA [Concomitant]
  4. PERCOCET [Concomitant]
  5. MS CONTIN [Concomitant]
  6. REYATAZ [Suspect]
     Indication: HIV INFECTION
  7. HALOPERIDOL [Concomitant]
  8. HEPARIN [Concomitant]
     Dosage: INJ

REACTIONS (3)
  - COLONIC OBSTRUCTION [None]
  - COLON CANCER [None]
  - SPINAL CORD PARALYSIS [None]
